FAERS Safety Report 6830635-8 (Version None)
Quarter: 2010Q3

REPORT INFORMATION
  Report Type: 
  Country: None (occurrence: None)
  Receive Date: 20100709
  Receipt Date: 20100709
  Transmission Date: 20110219
  Serious: No
  Sender: FDA-Public Use
  Company Number: None

PATIENT
  Sex: Female
  Weight: 83.9154 kg

DRUGS (1)
  1. OMEPRAZOLE MAGNESIUM [Suspect]
     Dosage: 1 PILL DAILY

REACTIONS (1)
  - PRURITUS [None]
